FAERS Safety Report 10579316 (Version 2)
Quarter: 2014Q4

REPORT INFORMATION
  Report Type: Spontaneous
  Country: US (occurrence: US)
  Receive Date: 20141112
  Receipt Date: 20141112
  Transmission Date: 20150529
  Serious: Yes (Hospitalization, Other)
  Sender: FDA-Public Use
  Company Number: US-BAYER-2014-154846

PATIENT
  Age: 53 Year
  Sex: Male
  Weight: 122 kg

DRUGS (4)
  1. GLEEVEC [Concomitant]
     Active Substance: IMATINIB MESYLATE
  2. OXYCODONE [Concomitant]
     Active Substance: OXYCODONE
  3. GADAVIST [Suspect]
     Active Substance: GADOBUTROL
     Indication: NEPHRECTOMY
  4. GADAVIST [Suspect]
     Active Substance: GADOBUTROL
     Indication: NUCLEAR MAGNETIC RESONANCE IMAGING
     Dosage: 10 MG, ONCE
     Route: 042
     Dates: start: 20140808, end: 20140808

REACTIONS (6)
  - Dyspnoea [Recovering/Resolving]
  - Seizure [Recovering/Resolving]
  - Swelling face [Recovering/Resolving]
  - Sneezing [Recovering/Resolving]
  - Erythema [Recovering/Resolving]
  - Swollen tongue [Recovering/Resolving]

NARRATIVE: CASE EVENT DATE: 20140808
